FAERS Safety Report 18148680 (Version 3)
Quarter: 2021Q1

REPORT INFORMATION
  Report Type: Spontaneous
  Country: FR (occurrence: FR)
  Receive Date: 20200814
  Receipt Date: 20210102
  Transmission Date: 20210419
  Serious: No
  Sender: FDA-Public Use
  Company Number: FR-LUPIN PHARMACEUTICALS INC.-2020-04077

PATIENT
  Age: 35 Year
  Sex: Female

DRUGS (5)
  1. PAROXETINE. [Suspect]
     Active Substance: PAROXETINE
     Dosage: 20 MILLIGRAM, QD (DOSE REDUCED)
     Route: 065
  2. PAROXETINE. [Suspect]
     Active Substance: PAROXETINE
     Dosage: 40 MILLIGRAM, QD (DOSE INCREASED)
     Route: 065
  3. PAROXETINE. [Suspect]
     Active Substance: PAROXETINE
     Dosage: 50 MG QD (DURING SECOND TRIMESTER)
     Route: 065
  4. PAROXETINE. [Suspect]
     Active Substance: PAROXETINE
     Dosage: 60 MG QD (DURING THIRD TRIMESTER)
     Route: 065
  5. PAROXETINE. [Suspect]
     Active Substance: PAROXETINE
     Indication: DEPRESSION
     Dosage: 30 MILLIGRAM, QD (FOR SEVERAL YEARS)
     Route: 065

REACTIONS (4)
  - Night sweats [Recovered/Resolved]
  - Drug withdrawal syndrome [Recovered/Resolved]
  - Maternal exposure during pregnancy [Unknown]
  - Nightmare [Recovered/Resolved]
